FAERS Safety Report 4516232-8 (Version None)
Quarter: 2004Q4

REPORT INFORMATION
  Report Type: 
  Country: None (occurrence: None)
  Receive Date: 20041201
  Receipt Date: 20041201
  Transmission Date: 20050328
  Serious: Yes (Life-Threatening)
  Sender: FDA-Public Use
  Company Number: None

PATIENT
  Age: 70 Year
  Sex: Male
  Weight: 72.1 kg

DRUGS (2)
  1. CALCIUM CARBONATE 500 MG [Suspect]
     Indication: PARATHYROIDECTOMY
     Dosage: 1000 MG QD ORAL
     Route: 048
     Dates: start: 20040301, end: 20040907
  2. ROCALTROL [Suspect]
     Indication: PARATHYROIDECTOMY
     Dosage: 0.25 MG TID ORAL
     Route: 048
     Dates: start: 20040301, end: 20040907

REACTIONS (3)
  - BRADYCARDIA [None]
  - HYPERCALCAEMIA [None]
  - RENAL FAILURE ACUTE [None]
